FAERS Safety Report 16959625 (Version 1)
Quarter: 2019Q4

REPORT INFORMATION
  Report Type: Spontaneous
  Country: US (occurrence: US)
  Receive Date: 20191025
  Receipt Date: 20191025
  Transmission Date: 20200122
  Serious: No
  Sender: FDA-Public Use
  Company Number: US-BIOGEN-2019BI00799719

PATIENT
  Sex: Female

DRUGS (11)
  1. ADDERALL [Concomitant]
     Active Substance: AMPHETAMINE ASPARTATE\AMPHETAMINE SULFATE\DEXTROAMPHETAMINE SACCHARATE\DEXTROAMPHETAMINE SULFATE
  2. LAMICTAL [Concomitant]
     Active Substance: LAMOTRIGINE
  3. MIRALAX [Concomitant]
     Active Substance: POLYETHYLENE GLYCOL 3350
     Route: 065
  4. XANAX [Concomitant]
     Active Substance: ALPRAZOLAM
     Route: 065
  5. SEROQUEL [Concomitant]
     Active Substance: QUETIAPINE FUMARATE
     Route: 065
  6. BACLOFEN. [Concomitant]
     Active Substance: BACLOFEN
     Route: 065
  7. TECFIDERA [Suspect]
     Active Substance: DIMETHYL FUMARATE
     Indication: MULTIPLE SCLEROSIS
     Dosage: TAKE 1 CAPSULE BY MOUTH TWICE A DAY
     Route: 048
  8. NEURONTIN [Concomitant]
     Active Substance: GABAPENTIN
     Route: 065
  9. MOTRIN [Concomitant]
     Active Substance: IBUPROFEN
     Route: 065
  10. MYRBETRIQ [Concomitant]
     Active Substance: MIRABEGRON
     Route: 065
  11. PROVIGIL [Concomitant]
     Active Substance: MODAFINIL
     Route: 065

REACTIONS (1)
  - Gastric disorder [Unknown]
